FAERS Safety Report 23935880 (Version 1)
Quarter: 2024Q2

REPORT INFORMATION
  Report Type: Spontaneous
  Country: US (occurrence: US)
  Receive Date: 20240604
  Receipt Date: 20240604
  Transmission Date: 20240715
  Serious: No
  Sender: FDA-Public Use
  Company Number: US-ALMIRALL, LLC-2024AQU000037

PATIENT

DRUGS (1)
  1. CORDRAN [Suspect]
     Active Substance: FLURANDRENOLIDE
     Indication: Psoriasis
     Dosage: UNK
     Route: 061
     Dates: start: 202403

REACTIONS (2)
  - Application site pain [Unknown]
  - Product adhesion issue [Unknown]
